FAERS Safety Report 5511167-6 (Version None)
Quarter: 2007Q4

REPORT INFORMATION
  Report Type: 
  Country: None (occurrence: None)
  Receive Date: 20071109
  Receipt Date: 20071105
  Transmission Date: 20080405
  Serious: Yes (Hospitalization, Other)
  Sender: FDA-Public Use
  Company Number: JP-BAYER-200710756BYL

PATIENT
  Age: 81 Year
  Sex: Male
  Weight: 45 kg

DRUGS (11)
  1. AVELOX [Suspect]
     Indication: PNEUMONIA
     Dosage: TOTAL DAILY DOSE: 400 MG  UNIT DOSE: 400 MG
     Route: 048
     Dates: start: 20070611, end: 20070615
  2. KAKKON-TO [Suspect]
     Indication: UPPER RESPIRATORY TRACT INFLAMMATION
     Dosage: TOTAL DAILY DOSE: 7.5 MG
     Route: 048
     Dates: start: 20070605, end: 20070609
  3. PL [Suspect]
     Indication: UPPER RESPIRATORY TRACT INFLAMMATION
     Dosage: TOTAL DAILY DOSE: 3.0 MG  UNIT DOSE: 1 MG
     Route: 048
     Dates: start: 20070605, end: 20070613
  4. MEIACT [Suspect]
     Indication: PNEUMONIA
     Dosage: TOTAL DAILY DOSE: 300 MG  UNIT DOSE: 100 MG
     Route: 048
     Dates: start: 20070609, end: 20070611
  5. AMLODIN OD [Concomitant]
     Dosage: TOTAL DAILY DOSE: 5 MG  UNIT DOSE: 5 MG
     Route: 048
     Dates: start: 20070507, end: 20070615
  6. DEPAS [Concomitant]
     Dosage: TOTAL DAILY DOSE: 1.0 MG  UNIT DOSE: 0.5 MG
     Route: 048
     Dates: start: 20070507, end: 20070615
  7. JUNCHO-TO [Concomitant]
     Dosage: TOTAL DAILY DOSE: 7.5 G  UNIT DOSE: 2.5 G
     Route: 048
     Dates: start: 20070507, end: 20070615
  8. GASMOTIN [Concomitant]
     Dosage: TOTAL DAILY DOSE: 45 MG  UNIT DOSE: 5 MG
     Route: 048
     Dates: start: 20070507, end: 20070615
  9. MEDICON [Concomitant]
     Dosage: TOTAL DAILY DOSE: 45 MG  UNIT DOSE: 15 MG
     Route: 048
     Dates: start: 20070605, end: 20070615
  10. MUCODYNE [Concomitant]
     Indication: UPPER RESPIRATORY TRACT INFLAMMATION
     Dosage: TOTAL DAILY DOSE: 1500 MG  UNIT DOSE: 500 MG
     Route: 048
     Dates: start: 20070605, end: 20070615
  11. TRANSAMIN [Concomitant]
     Indication: UPPER RESPIRATORY TRACT INFLAMMATION
     Dosage: TOTAL DAILY DOSE: 1500 MG
     Route: 048
     Dates: start: 20070605, end: 20070613

REACTIONS (1)
  - INTERSTITIAL LUNG DISEASE [None]
